FAERS Safety Report 4694069-7 (Version None)
Quarter: 2005Q2

REPORT INFORMATION
  Report Type: 
  Country: None (occurrence: None)
  Receive Date: 20050616
  Receipt Date: 20050603
  Transmission Date: 20051028
  Serious: Yes (Hospitalization, Other)
  Sender: FDA-Public Use
  Company Number: 2005086290

PATIENT
  Age: 81 Year
  Sex: Male
  Weight: 98.8842 kg

DRUGS (6)
  1. BEXTRA [Suspect]
     Indication: ARTHRITIS
     Dosage: 10 MG (10 MG, 1 IN 1 D), ORAL
     Route: 048
  2. ALL OTHER THERAPEUTIC PRODUCTS [Suspect]
     Indication: PROSTATE CANCER
     Dosage: (Q3MON INTERVAL: CYCLIC), SUBCUTANEOUS
     Route: 058
     Dates: start: 20050101, end: 20050404
  3. WARFARIN [Concomitant]
  4. POTASSIUM CHLORIDE [Concomitant]
  5. FUROSEMIDE [Concomitant]
  6. PROPRANOLOL [Concomitant]

REACTIONS (3)
  - HOT FLUSH [None]
  - PROSTATE CANCER [None]
  - RASH PRURITIC [None]
